FAERS Safety Report 18627566 (Version 2)
Quarter: 2021Q1

REPORT INFORMATION
  Report Type: Report from Study
  Country: US (occurrence: US)
  Receive Date: 20201217
  Receipt Date: 20210203
  Transmission Date: 20210419
  Serious: Yes (Hospitalization, Other)
  Sender: FDA-Public Use
  Company Number: US-TAKEDA-2020TUS055865

PATIENT
  Age: 66 Year
  Sex: Female

DRUGS (4)
  1. TEDUGLUTIDE [Suspect]
     Active Substance: TEDUGLUTIDE
     Indication: PRODUCT USED FOR UNKNOWN INDICATION
     Dosage: 0.3013 UNK, QD
     Route: 058
     Dates: start: 20151105
  2. TEDUGLUTIDE [Suspect]
     Active Substance: TEDUGLUTIDE
     Indication: PRODUCT USED FOR UNKNOWN INDICATION
     Dosage: 0.3013 UNK, QD
     Route: 058
     Dates: start: 20151105
  3. TEDUGLUTIDE [Suspect]
     Active Substance: TEDUGLUTIDE
     Indication: PRODUCT USED FOR UNKNOWN INDICATION
     Dosage: 0.3013 UNK, QD
     Route: 058
     Dates: start: 20151105
  4. TEDUGLUTIDE [Suspect]
     Active Substance: TEDUGLUTIDE
     Indication: PRODUCT USED FOR UNKNOWN INDICATION
     Dosage: 0.3013 UNK, QD
     Route: 058
     Dates: start: 20151105

REACTIONS (3)
  - Urosepsis [Unknown]
  - Product availability issue [Recovering/Resolving]
  - Product distribution issue [Unknown]

NARRATIVE: CASE EVENT DATE: 20201203
